FAERS Safety Report 6752409-9 (Version None)
Quarter: 2010Q2

REPORT INFORMATION
  Report Type: 
  Country: None (occurrence: None)
  Receive Date: 20100601
  Receipt Date: 20100601
  Transmission Date: 20101027
  Serious: Yes (Life-Threatening, Hospitalization, Disabling, Other)
  Sender: FDA-Public Use
  Company Number: None

PATIENT
  Age: 22 Year
  Sex: Female
  Weight: 40.8237 kg

DRUGS (1)
  1. MIRENA [Suspect]
     Indication: CONTRACEPTION

REACTIONS (5)
  - AMENORRHOEA [None]
  - HYPOPHAGIA [None]
  - UNEVALUABLE EVENT [None]
  - VOMITING [None]
  - WEIGHT DECREASED [None]
